FAERS Safety Report 10558974 (Version 1)
Quarter: 2014Q4

REPORT INFORMATION
  Report Type: Spontaneous
  Country: US (occurrence: US)
  Receive Date: 20141102
  Receipt Date: 20141102
  Transmission Date: 20150529
  Serious: Yes (Hospitalization)
  Sender: FDA-Public Use
  Company Number: US-RANBAXY-2014US-87128

PATIENT
  Age: 45 Year
  Sex: Male

DRUGS (2)
  1. CLARITHROMYCIN. [Suspect]
     Active Substance: CLARITHROMYCIN
     Indication: UPPER RESPIRATORY TRACT INFECTION
     Dosage: 250 MG, BID
     Route: 065
  2. TYLENOL [Concomitant]
     Active Substance: ACETAMINOPHEN
     Indication: UPPER RESPIRATORY TRACT INFECTION
     Dosage: 1000 MG, DAILY
     Route: 065

REACTIONS (2)
  - Hepatotoxicity [Recovered/Resolved]
  - Portal hypertension [Recovered/Resolved]
